APPROVED DRUG PRODUCT: ESZOPICLONE
Active Ingredient: ESZOPICLONE
Strength: 1MG
Dosage Form/Route: TABLET;ORAL
Application: A091165 | Product #001
Applicant: CHARTWELL RX SCIENCES LLC
Approved: Jul 14, 2011 | RLD: No | RS: No | Type: DISCN